FAERS Safety Report 11145879 (Version 1)
Quarter: 2015Q2

REPORT INFORMATION
  Report Type: Spontaneous
  Country: BE (occurrence: BE)
  Receive Date: 20150528
  Receipt Date: 20150528
  Transmission Date: 20150821
  Serious: Yes (Hospitalization, Disabling, Congenital Anomaly)
  Sender: FDA-Public Use
  Company Number: BE-ABBVIE-15P-013-1398962-00

PATIENT
  Sex: Male
  Weight: 80 kg

DRUGS (1)
  1. DEPAKINE [Suspect]
     Active Substance: VALPROATE SODIUM
     Indication: MATERNAL EXPOSURE TIMING UNSPECIFIED
     Route: 064

REACTIONS (8)
  - Depression [Unknown]
  - Asperger^s disorder [Not Recovered/Not Resolved]
  - Foetal exposure during pregnancy [Not Recovered/Not Resolved]
  - Compulsive shopping [Unknown]
  - Phobia [Unknown]
  - Social phobia [Unknown]
  - Paranoia [Unknown]
  - Autism [Unknown]
